FAERS Safety Report 7529313-1 (Version None)
Quarter: 2011Q2

REPORT INFORMATION
  Report Type: 
  Country: None (occurrence: None)
  Receive Date: 20110607
  Receipt Date: 20050217
  Transmission Date: 20111010
  Serious: Yes (Hospitalization)
  Sender: FDA-Public Use
  Company Number: PHHO2005BR02874

PATIENT
  Sex: Female

DRUGS (3)
  1. HYDROCHLOROTHIAZIDE [Concomitant]
     Indication: HYPERTENSION
  2. GLEEVEC [Suspect]
     Indication: GASTROINTESTINAL STROMAL TUMOUR
     Dosage: 400 MG, QD
     Route: 048
     Dates: start: 20040901
  3. INSULINA P.Z.PURIFICADA [Concomitant]
     Indication: DIABETES MELLITUS

REACTIONS (7)
  - METASTASES TO LIVER [None]
  - PYREXIA [None]
  - DIABETES MELLITUS [None]
  - NEOPLASM MALIGNANT [None]
  - PNEUMONIA BACTERIAL [None]
  - JAUNDICE [None]
  - HYPERGLYCAEMIA [None]
